FAERS Safety Report 5368796-2 (Version None)
Quarter: 2007Q2

REPORT INFORMATION
  Report Type: 
  Country: None (occurrence: None)
  Receive Date: 20070620
  Receipt Date: 20070611
  Transmission Date: 20071010
  Serious: Yes (Hospitalization)
  Sender: FDA-Public Use
  Company Number: 163-20785-07060608

PATIENT
  Age: 55 Year
  Sex: Male

DRUGS (23)
  1. THALOMID [Suspect]
     Indication: MULTIPLE MYELOMA
     Dosage: ORAL
     Route: 048
     Dates: start: 20050403, end: 20050406
  2. DEXAMETHASONE TAB [Suspect]
     Indication: DIARRHOEA
     Dosage: ORAL
     Route: 048
     Dates: start: 20050403, end: 20050406
  3. DEXAMETHASONE TAB [Suspect]
     Indication: MULTIPLE MYELOMA
     Dosage: ORAL
     Route: 048
     Dates: start: 20050403, end: 20050406
  4. VELCADE [Suspect]
     Indication: MULTIPLE MYELOMA
     Dosage: 1 MG/M2, DAYS 1, 4, 8, 11, INTRAVENOUS
     Route: 042
     Dates: start: 20050330, end: 20050410
  5. CISPLATIN [Suspect]
     Indication: MULTIPLE MYELOMA
     Dosage: INTRAVENOUS
     Route: 042
     Dates: start: 20050403, end: 20050406
  6. ADRIAMYCIN PFS [Suspect]
     Indication: MULTIPLE MYELOMA
     Dosage: INTRAVENOUS
     Route: 042
     Dates: start: 20050403, end: 20050406
  7. CYCLOPHOSPHAMIDE [Suspect]
     Indication: MULTIPLE MYELOMA
     Dosage: INTRAVENOUS
     Route: 042
     Dates: start: 20050403, end: 20050406
  8. ETOPOSIDE [Suspect]
     Indication: MULTIPLE MYELOMA
     Dosage: INTRAVENOUS
     Route: 042
     Dates: start: 20050403, end: 20050406
  9. ACYCLOVIR [Concomitant]
  10. FOLIC ACID [Concomitant]
  11. MULTIVITAMIN (MULTIVITAMINS) (TABLETS) [Concomitant]
  12. RABEPRAZOLE SODIUM [Concomitant]
  13. ZOLPIDEM TARTRATE [Concomitant]
  14. REGLAN [Concomitant]
  15. FENTANYL (FENTANYL) (POULTICE OR PATCH) [Concomitant]
  16. OXYCODONE HCL [Concomitant]
  17. FLEXERIL [Concomitant]
  18. IRON COMPLEX (IRON) [Concomitant]
  19. MAGNESIUM OXIDE (MAGNESIUM OXIDE) [Concomitant]
  20. GABAPENTIN [Concomitant]
  21. CELEXA [Concomitant]
  22. DOCUSATE (DOCUSATE) (CAPSULES) [Concomitant]
  23. SENNA (SENNA) [Concomitant]

REACTIONS (14)
  - BACTERAEMIA [None]
  - COMPRESSION FRACTURE [None]
  - DIARRHOEA [None]
  - DIZZINESS [None]
  - HYPOTENSION [None]
  - ISCHAEMIC STROKE [None]
  - MYOCARDIAL INFARCTION [None]
  - NAUSEA [None]
  - SHOCK [None]
  - STAPHYLOCOCCAL INFECTION [None]
  - SYNCOPE [None]
  - SYNCOPE VASOVAGAL [None]
  - THORACIC VERTEBRAL FRACTURE [None]
  - VOMITING [None]
